FAERS Safety Report 8338149-3 (Version None)
Quarter: 2012Q2

REPORT INFORMATION
  Report Type: 
  Country: None (occurrence: None)
  Receive Date: 20120504
  Receipt Date: 20120501
  Transmission Date: 20120825
  Serious: No
  Sender: FDA-Public Use
  Company Number: US-PFIZER INC-2012006044

PATIENT
  Sex: Female

DRUGS (6)
  1. BUSPAR [Suspect]
     Indication: ANXIETY
  2. ALDACTONE [Suspect]
     Indication: BLOOD PRESSURE INCREASED
     Dosage: 25 MG, 1X/DAY
     Route: 048
     Dates: start: 20021010, end: 20021126
  3. NEXIUM [Suspect]
     Indication: GASTROOESOPHAGEAL REFLUX DISEASE
     Dosage: 40 MG, 1X/DAY
     Route: 048
     Dates: start: 20021126, end: 20030130
  4. NAPROSYN [Suspect]
     Indication: MUSCULOSKELETAL PAIN
     Dosage: 500 MG, 2X/DAY
     Route: 048
     Dates: start: 19970629, end: 19970711
  5. BUSPAR [Suspect]
     Indication: AFFECTIVE DISORDER
     Dosage: 15 MG, 1X/DAY
     Route: 048
     Dates: start: 19971029, end: 20001207
  6. ZOCOR [Suspect]
     Indication: HYPERLIPIDAEMIA
     Dosage: 20 MG, 1X/DAY
     Route: 048
     Dates: start: 20080605, end: 20080825

REACTIONS (8)
  - NAUSEA [None]
  - ABDOMINAL PAIN [None]
  - MUSCLE SPASMS [None]
  - ANXIETY [None]
  - DRUG HYPERSENSITIVITY [None]
  - MUSCULOSKELETAL PAIN [None]
  - DEPRESSION [None]
  - GASTROOESOPHAGEAL REFLUX DISEASE [None]
